FAERS Safety Report 9524390 (Version 1)
Quarter: 2013Q3

REPORT INFORMATION
  Report Type: Spontaneous
  Country: US (occurrence: None)
  Receive Date: 20130912
  Receipt Date: 20130912
  Transmission Date: 20140515
  Serious: Yes (Other)
  Sender: FDA-Public Use
  Company Number: None

PATIENT
  Age: 60 None
  Sex: Female
  Weight: 86.18 kg

DRUGS (11)
  1. RESTASIS [Suspect]
     Indication: DRY EYE
     Dosage: 1 VIAL IN EACH EYE 2/X PER DAY, 2X DAILY IN EACH EYE, EYE DROP IN EACH EYE
     Dates: start: 20130902, end: 20130903
  2. METFORMIN [Concomitant]
  3. OMEPRAZOLE [Concomitant]
  4. CRESTOR [Concomitant]
  5. LEVOTHYROXINE [Concomitant]
  6. DIOVAN HCT [Concomitant]
  7. ESTRACE [Concomitant]
  8. TRIAMCINILONE CREAM GEL [Concomitant]
  9. VOLTAREN GEL [Concomitant]
  10. MULTI VITAMIN FOR 50 + FEMALES [Concomitant]
  11. ARTIFICIAL TEARS [Concomitant]

REACTIONS (6)
  - Sensation of pressure [None]
  - Lip swelling [None]
  - Cheilitis [None]
  - Hypoaesthesia [None]
  - Hypoaesthesia oral [None]
  - Drug hypersensitivity [None]
